FAERS Safety Report 23264955 (Version 1)
Quarter: 2023Q4

REPORT INFORMATION
  Report Type: Spontaneous
  Country: US (occurrence: US)
  Receive Date: 20231206
  Receipt Date: 20231206
  Transmission Date: 20240109
  Serious: No
  Sender: FDA-Public Use
  Company Number: US-STERISCIENCE B.V.-2023-ST-000033

PATIENT
  Age: 58 Year
  Sex: Female

DRUGS (4)
  1. BUPIVACAINE [Suspect]
     Active Substance: BUPIVACAINE
     Indication: Hyperhidrosis
     Dosage: 2.5 MILLIGRAM PER MILLILITRE
     Route: 037
  2. BUPIVACAINE [Suspect]
     Active Substance: BUPIVACAINE
     Dosage: MAINTAINED ON 0.2 MILLIGRAM
     Route: 037
  3. CLONIDINE [Concomitant]
     Active Substance: CLONIDINE
     Indication: Hyperhidrosis
     Dosage: 200 MICROGRAM/MILLILITRE
     Route: 037
  4. CLONIDINE [Concomitant]
     Active Substance: CLONIDINE
     Dosage: MAINTAINED ON 20 MICROGRAM/24 HOUR
     Route: 037

REACTIONS (1)
  - Off label use [Unknown]
